FAERS Safety Report 8270793 (Version 2)
Quarter: 2012Q4

REPORT INFORMATION
  Report Type: Report from Study
  Country: GB (occurrence: GB)
  Receive Date: 20111201
  Receipt Date: 20120924
  Transmission Date: 20130627
  Serious: Yes (Hospitalization, Other)
  Sender: FDA-Public Use
  Company Number: GB-PFIZER INC-2011281847

PATIENT
  Age: 59 Year
  Sex: Female

DRUGS (6)
  1. MYLOTARG [Suspect]
     Indication: ACUTE MYELOID LEUKAEMIA
     Dosage: 6 mg, 3 cycles
     Dates: start: 20110722, end: 20111015
  2. MYLOTARG [Suspect]
     Indication: MYELODYSPLASTIC SYNDROME
  3. DAUNORUBICIN [Suspect]
     Indication: ACUTE MYELOID LEUKAEMIA
     Dosage: 3 cycles
     Dates: start: 20110722, end: 20111015
  4. DAUNORUBICIN [Suspect]
     Indication: MYELODYSPLASTIC SYNDROME
  5. ARA-C [Concomitant]
     Indication: ACUTE MYELOID LEUKAEMIA
     Dosage: 3 cycles
     Dates: start: 20110722, end: 20111015
  6. ARA-C [Concomitant]
     Indication: MYELODYSPLASTIC SYNDROME

REACTIONS (2)
  - Cardiac failure congestive [Recovered/Resolved]
  - Cardiomyopathy [Recovered/Resolved]
